FAERS Safety Report 11742030 (Version 1)
Quarter: 2015Q4

REPORT INFORMATION
  Report Type: Spontaneous
  Country: US (occurrence: US)
  Receive Date: 20151116
  Receipt Date: 20151116
  Transmission Date: 20160304
  Serious: No
  Sender: FDA-Public Use
  Company Number: US-EMD SERONO-8052044

PATIENT
  Sex: Female

DRUGS (1)
  1. REBIF [Suspect]
     Active Substance: INTERFERON BETA-1A
     Indication: MULTIPLE SCLEROSIS
     Route: 058
     Dates: start: 2009

REACTIONS (5)
  - Dysphagia [Unknown]
  - Peroneal nerve palsy [Unknown]
  - Drug intolerance [Unknown]
  - Visual acuity reduced [Unknown]
  - Muscle spasms [Unknown]
